FAERS Safety Report 16426339 (Version 1)
Quarter: 2019Q3

REPORT INFORMATION
  Report Type: Spontaneous
  Country: EG (occurrence: EG)
  Receive Date: 20190612
  Receipt Date: 20190612
  Transmission Date: 20191004
  Serious: Yes (Hospitalization, Other)
  Sender: FDA-Public Use
  Company Number: None

PATIENT
  Age: 43 Year
  Sex: Female
  Weight: 70 kg

DRUGS (1)
  1. IMODIUM [Suspect]
     Active Substance: LOPERAMIDE HYDROCHLORIDE
     Indication: DIARRHOEA
     Dates: start: 20170729, end: 20170806

REACTIONS (4)
  - Sinus tachycardia [None]
  - Hypokalaemia [None]
  - Intra-abdominal fluid collection [None]
  - Supraventricular tachycardia [None]

NARRATIVE: CASE EVENT DATE: 20170801
